FAERS Safety Report 7898027 (Version 3)
Quarter: 2012Q4

REPORT INFORMATION
  Report Type: 
  Country: US (occurrence: US)
  Receive Date: 20110413
  Receipt Date: 20121106
  Transmission Date: 20130627
  Serious: No
  Sender: FDA-Public Use
  Company Number: US-ASTRAZENECA-2010SE51869

PATIENT
  Age: 83 Year
  Sex: Female

DRUGS (11)
  1. TENORMIN [Suspect]
     Route: 065
     Dates: start: 20080515
  2. ZESTORETIC [Suspect]
     Dosage: 10+12.5 MG/TABLET
     Route: 048
     Dates: start: 20070924, end: 200801
  3. METOPROLOL [Suspect]
     Route: 048
     Dates: start: 19970827, end: 2007
  4. TOPROL XL [Suspect]
     Route: 048
     Dates: end: 19970827
  5. TOPROL XL [Suspect]
     Route: 048
     Dates: start: 2008
  6. COREG CR [Suspect]
     Route: 065
     Dates: start: 200801
  7. NIFEDIPINE [Suspect]
     Route: 065
     Dates: start: 20080530
  8. OMEPRAZOLE [Concomitant]
  9. SYNTHROID [Concomitant]
  10. HYSOPHEN [Concomitant]
  11. CELEBREX [Concomitant]

REACTIONS (18)
  - Blood pressure inadequately controlled [Recovered/Resolved]
  - Malaise [Unknown]
  - Influenza [Unknown]
  - Activities of daily living impaired [Unknown]
  - Eye haemorrhage [Unknown]
  - Muscle spasms [Unknown]
  - Muscle spasms [Unknown]
  - Fatigue [Unknown]
  - Hypoaesthesia [Unknown]
  - Abdominal discomfort [Unknown]
  - Paraesthesia [Unknown]
  - Confusional state [Unknown]
  - Constipation [Unknown]
  - Fatigue [Unknown]
  - Dizziness [Unknown]
  - Asthenia [Unknown]
  - Intentional drug misuse [Unknown]
  - Drug ineffective [Unknown]
